FAERS Safety Report 9518667 (Version 1)
Quarter: 2013Q3

REPORT INFORMATION
  Report Type: Spontaneous
  Country: US (occurrence: None)
  Receive Date: 20130910
  Receipt Date: 20130910
  Transmission Date: 20140515
  Serious: Yes (Other)
  Sender: FDA-Public Use
  Company Number: 2013SA088922

PATIENT
  Sex: Female

DRUGS (1)
  1. ICY HOT [Suspect]
     Indication: BACK INJURY
     Dates: start: 20130831

REACTIONS (3)
  - Application site burn [None]
  - Application site vesicles [None]
  - Application site pain [None]
